FAERS Safety Report 4984062-9 (Version None)
Quarter: 2006Q1

REPORT INFORMATION
  Report Type: 
  Country: None (occurrence: None)
  Receive Date: 20060302
  Receipt Date: 20051215
  Transmission Date: 20060701
  Serious: No
  Sender: FDA-Public Use
  Company Number: S05-USA-05214-01

PATIENT
  Age: 45 Year
  Sex: Male

DRUGS (2)
  1. CAMPRAL [Suspect]
     Indication: ALCOHOLISM
     Dosage: 666 MG TID PO
     Route: 048
  2. ROBAXIN [Suspect]
     Indication: ALCOHOL WITHDRAWAL SYNDROME

REACTIONS (1)
  - ENURESIS [None]
